FAERS Safety Report 11612082 (Version 1)
Quarter: 2015Q4

REPORT INFORMATION
  Report Type: Report from Study
  Country: BR (occurrence: BR)
  Receive Date: 20151008
  Receipt Date: 20151008
  Transmission Date: 20160304
  Serious: Yes (Other)
  Sender: FDA-Public Use
  Company Number: BR-GLAXOSMITHKLINE-BR2015GSK141440

PATIENT
  Age: 4 Year
  Sex: Male
  Weight: 18 kg

DRUGS (3)
  1. FLUTICASONE PROPIONATE. [Suspect]
     Active Substance: FLUTICASONE PROPIONATE
     Indication: ASTHMA
     Dosage: 4 PUFF(S), QD,50 MG.
     Route: 055
     Dates: start: 20150522
  2. AVAMYS [Concomitant]
     Active Substance: FLUTICASONE FUROATE
     Indication: RHINITIS ALLERGIC
     Dosage: 1 PUFF(S), QD
     Dates: start: 20150422
  3. MONTELAIR [Concomitant]
     Active Substance: MONTELUKAST SODIUM
     Indication: ASTHMA
     Dosage: 1 UNK, QD
     Route: 048
     Dates: start: 20150522

REACTIONS (8)
  - Respiratory disorder [Unknown]
  - Chest pain [Unknown]
  - Malaise [Recovered/Resolved]
  - Overdose [Unknown]
  - Asthmatic crisis [Unknown]
  - Wheezing [Unknown]
  - Cough [Unknown]
  - Vomiting [Recovered/Resolved]

NARRATIVE: CASE EVENT DATE: 20150929
